FAERS Safety Report 20448701 (Version 1)
Quarter: 2022Q1

REPORT INFORMATION
  Report Type: Spontaneous
  Country: US (occurrence: None)
  Receive Date: 20220208
  Receipt Date: 20220208
  Transmission Date: 20220423
  Serious: Yes (Hospitalization)
  Sender: FDA-Public Use
  Company Number: None

PATIENT
  Sex: Male

DRUGS (8)
  1. MYCOPHENOLIC ACID [Suspect]
     Active Substance: MYCOPHENOLIC ACID
     Dosage: FREQUENCY : TWICE A DAY;?
     Route: 048
  2. CYCLOSPORINE [Concomitant]
     Active Substance: CYCLOSPORINE
  3. DILTIAZEM [Concomitant]
     Active Substance: DILTIAZEM
  4. EZETIMIBE [Concomitant]
     Active Substance: EZETIMIBE
  5. GENGRAF [Concomitant]
     Active Substance: CYCLOSPORINE
  6. GENTAMICIN CRE 0.1% [Concomitant]
  7. LOKELMA PAK [Concomitant]
  8. MYCOPHENOLATE MOFETIL [Concomitant]
     Active Substance: MYCOPHENOLATE MOFETIL

REACTIONS (1)
  - Infection [None]
